FAERS Safety Report 6077856-2 (Version None)
Quarter: 2009Q1

REPORT INFORMATION
  Report Type: 
  Country: None (occurrence: None)
  Receive Date: 20090213
  Receipt Date: 20090202
  Transmission Date: 20090719
  Serious: Yes (Other)
  Sender: FDA-Public Use
  Company Number: US-JNJFOC-20090200572

PATIENT
  Sex: Female
  Weight: 68.04 kg

DRUGS (13)
  1. REMICADE [Suspect]
     Route: 042
  2. REMICADE [Suspect]
     Route: 042
  3. REMICADE [Suspect]
     Route: 042
  4. REMICADE [Suspect]
     Route: 042
  5. REMICADE [Suspect]
     Route: 042
  6. REMICADE [Suspect]
     Route: 042
  7. REMICADE [Suspect]
     Indication: CROHN'S DISEASE
     Route: 042
  8. AZATHIOPRINE [Concomitant]
     Indication: CROHN'S DISEASE
  9. MESALAMINE [Concomitant]
     Indication: CROHN'S DISEASE
  10. PREDNISONE [Concomitant]
     Indication: CROHN'S DISEASE
  11. ACETAMINOPHEN [Concomitant]
  12. ACETAMINOPHEN [Concomitant]
  13. ACETAMINOPHEN [Concomitant]
     Indication: PREMEDICATION

REACTIONS (2)
  - DRUG EXPOSURE DURING PREGNANCY [None]
  - PREMATURE BABY [None]
